FAERS Safety Report 23628865 (Version 1)
Quarter: 2024Q1

REPORT INFORMATION
  Report Type: Spontaneous
  Country: US (occurrence: US)
  Receive Date: 20240313
  Receipt Date: 20240313
  Transmission Date: 20240410
  Serious: No
  Sender: FDA-Public Use
  Company Number: US-MYLANLABS-2024M1019162

PATIENT
  Age: 71 Year
  Sex: Female

DRUGS (1)
  1. TYRVAYA [Suspect]
     Active Substance: VARENICLINE TARTRATE
     Indication: Dry eye
     Dosage: UNK, BID (1 TIME IN EACH NOSTRIL)
     Route: 065

REACTIONS (4)
  - Sneezing [Unknown]
  - Product communication issue [Unknown]
  - Product taste abnormal [Unknown]
  - Therapeutic product effect incomplete [Unknown]
